FAERS Safety Report 5963449-1 (Version None)
Quarter: 2008Q4

REPORT INFORMATION
  Report Type: 
  Country: None (occurrence: None)
  Receive Date: 20081121
  Receipt Date: 20081121
  Transmission Date: 20090506
  Serious: Yes (Life-Threatening, Hospitalization, Other)
  Sender: FDA-Public Use
  Company Number: None

PATIENT
  Sex: Male
  Weight: 65.7716 kg

DRUGS (4)
  1. IBUPROFEN TABLETS [Suspect]
     Indication: ARTHRALGIA
     Dosage: 800MG Q6-8HR PO
     Route: 048
     Dates: start: 20071116, end: 20071209
  2. IBUPROFEN TABLETS [Suspect]
     Indication: BACK PAIN
     Dosage: 800MG Q6-8HR PO
     Route: 048
     Dates: start: 20071116, end: 20071209
  3. IBUPROFEN TABLETS [Suspect]
     Indication: MUSCULOSKELETAL PAIN
     Dosage: 800MG Q6-8HR PO
     Route: 048
     Dates: start: 20071116, end: 20071209
  4. IBUPROFEN TABLETS [Suspect]
     Indication: NECK PAIN
     Dosage: 800MG Q6-8HR PO
     Route: 048
     Dates: start: 20071116, end: 20071209

REACTIONS (1)
  - ANAEMIA HAEMOLYTIC AUTOIMMUNE [None]
